FAERS Safety Report 7052259-2 (Version None)
Quarter: 2010Q4

REPORT INFORMATION
  Report Type: 
  Country: None (occurrence: None)
  Receive Date: 20101018
  Receipt Date: 20101018
  Transmission Date: 20110411
  Serious: Yes (Hospitalization, Other)
  Sender: FDA-Public Use
  Company Number: None

PATIENT
  Age: 23 Year
  Sex: Female
  Weight: 79.3795 kg

DRUGS (2)
  1. YAZ [Suspect]
     Indication: CONTRACEPTION
     Dosage: 3MG 1 A DAY PO
     Route: 048
     Dates: start: 20010103, end: 20091110
  2. OCELLA 3MG BAYER HEALTHCARE PHARMACEUTICALS [Suspect]
     Indication: CONTRACEPTION
     Dosage: 3MG 1 A DAY PO
     Route: 048
     Dates: start: 20010103, end: 20091110

REACTIONS (6)
  - ABDOMINAL PAIN [None]
  - FEAR [None]
  - GALLBLADDER DISORDER [None]
  - MOBILITY DECREASED [None]
  - OVARIAN CYST [None]
  - STRESS [None]
